FAERS Safety Report 11929660 (Version 1)
Quarter: 2016Q1

REPORT INFORMATION
  Report Type: Spontaneous
  Country: US (occurrence: US)
  Receive Date: 20160120
  Receipt Date: 20160120
  Transmission Date: 20160526
  Serious: Yes (Death)
  Sender: FDA-Public Use
  Company Number: US-ROCHE-1697022

PATIENT
  Sex: Female
  Weight: 67.19 kg

DRUGS (1)
  1. ESBRIET [Suspect]
     Active Substance: PIRFENIDONE
     Indication: IDIOPATHIC PULMONARY FIBROSIS
     Dosage: TOTAL-2403MG DAILY
     Route: 048
     Dates: start: 20151019, end: 20151222

REACTIONS (1)
  - Death [Fatal]
